FAERS Safety Report 6974951-8 (Version None)
Quarter: 2010Q3

REPORT INFORMATION
  Report Type: 
  Country: None (occurrence: None)
  Receive Date: 20100909
  Receipt Date: 20081222
  Transmission Date: 20110219
  Serious: No
  Sender: FDA-Public Use
  Company Number: US-WYE-H07384608

PATIENT
  Sex: Female
  Weight: 65.83 kg

DRUGS (10)
  1. PRISTIQ [Suspect]
     Indication: DEPRESSION
     Route: 048
     Dates: start: 20081101
  2. PRISTIQ [Suspect]
     Indication: ANXIETY
  3. ASCORBIC ACID [Concomitant]
  4. VITAMINS WITH MINERALS [Concomitant]
  5. CEPHALEXIN [Concomitant]
  6. IBUPROFEN [Concomitant]
  7. SYNTHROID [Concomitant]
  8. LORCET-HD [Concomitant]
  9. ALLEGRA [Concomitant]
  10. CYCLOBENZAPRINE [Concomitant]

REACTIONS (3)
  - DRUG EFFECT DECREASED [None]
  - IRRITABILITY [None]
  - OBSESSIVE THOUGHTS [None]
